FAERS Safety Report 4791868-8 (Version None)
Quarter: 2005Q4

REPORT INFORMATION
  Report Type: 
  Country: None (occurrence: None)
  Receive Date: 20051005
  Receipt Date: 20050926
  Transmission Date: 20060501
  Serious: Yes (Other)
  Sender: FDA-Public Use
  Company Number: 2005-09-1746

PATIENT
  Age: 34 Year
  Sex: Male
  Weight: 75 kg

DRUGS (5)
  1. PEG-INTRON [Suspect]
     Indication: HEPATITIS C
     Dosage: 100 MCG QW SUBCUTANEOUS
     Route: 058
     Dates: start: 20050501, end: 20050916
  2. PEG-INTRON [Suspect]
  3. REBETOL [Suspect]
     Indication: HEPATITIS C
     Dosage: 800-200 MG* ORAL
     Route: 048
     Dates: start: 20050501, end: 20050101
  4. REBETOL [Suspect]
     Indication: HEPATITIS C
     Dosage: 800-200 MG* ORAL
     Route: 048
     Dates: start: 20050101, end: 20050916
  5. REBETOL [Suspect]

REACTIONS (4)
  - EYE PAIN [None]
  - LYMPHOMA [None]
  - SARCOIDOSIS [None]
  - WEIGHT DECREASED [None]
